FAERS Safety Report 17506204 (Version 1)
Quarter: 2020Q1

REPORT INFORMATION
  Report Type: Spontaneous
  Country: MX (occurrence: MX)
  Receive Date: 20200305
  Receipt Date: 20200305
  Transmission Date: 20200409
  Serious: Yes (Other)
  Sender: FDA-Public Use
  Company Number: MX-009507513-2003MEX001968

PATIENT
  Age: 51 Year
  Sex: Female

DRUGS (6)
  1. FOSAMAX PLUS D [Suspect]
     Active Substance: ALENDRONATE SODIUM\CHOLECALCIFEROL
     Indication: OSTEOPENIA
     Dosage: 1 TABLET 70MG/5600IU  HALF HOUR BEFORE BREAKFAST EVERY WEEK
     Route: 048
     Dates: start: 20100119
  2. FOSAMAX PLUS D [Suspect]
     Active Substance: ALENDRONATE SODIUM\CHOLECALCIFEROL
     Indication: OSTEOARTHRITIS
  3. CALTRATE WITH VITAMIN D [Concomitant]
     Active Substance: CALCIUM CARBONATE\CHOLECALCIFEROL
     Indication: OSTEOPENIA
     Dosage: 2 TABLETS, Q24H
     Route: 048
     Dates: start: 20100119
  4. FOSAMAX PLUS D [Suspect]
     Active Substance: ALENDRONATE SODIUM\CHOLECALCIFEROL
     Indication: OSTEOPOROSIS PROPHYLAXIS
  5. CALTRATE WITH VITAMIN D [Concomitant]
     Active Substance: CALCIUM CARBONATE\CHOLECALCIFEROL
     Indication: OSTEOPOROSIS PROPHYLAXIS
  6. CALTRATE WITH VITAMIN D [Concomitant]
     Active Substance: CALCIUM CARBONATE\CHOLECALCIFEROL
     Indication: OSTEOARTHRITIS

REACTIONS (9)
  - Spondyloarthropathy [Unknown]
  - Spinal osteoarthritis [Unknown]
  - Off label use [Unknown]
  - Leiomyoma [Unknown]
  - Oestrogen deficiency [Unknown]
  - Fall [Unknown]
  - Breast cancer [Unknown]
  - Dermatitis atopic [Unknown]
  - Ankle fracture [Unknown]

NARRATIVE: CASE EVENT DATE: 20100119
